FAERS Safety Report 11451435 (Version 1)
Quarter: 2015Q3

REPORT INFORMATION
  Report Type: Spontaneous
  Country: US (occurrence: US)
  Receive Date: 20150903
  Receipt Date: 20150903
  Transmission Date: 20151125
  Serious: No
  Sender: FDA-Public Use
  Company Number: US-ROCHE-1040306

PATIENT
  Sex: Male
  Weight: 69.01 kg

DRUGS (2)
  1. RIBAVIRIN. [Suspect]
     Active Substance: RIBAVIRIN
     Indication: CHRONIC HEPATITIS C
     Dosage: DAILY DIVIDED DOSE
     Route: 048
     Dates: start: 20120203, end: 201202
  2. PEGASYS [Suspect]
     Active Substance: PEGINTERFERON ALFA-2A
     Indication: CHRONIC HEPATITIS C
     Route: 058
     Dates: start: 20120203, end: 201202

REACTIONS (8)
  - Headache [Recovered/Resolved]
  - Paraesthesia [Unknown]
  - Speech disorder [Unknown]
  - Dizziness [Unknown]
  - Mental impairment [Unknown]
  - Memory impairment [Unknown]
  - Chills [Unknown]
  - Lethargy [Recovered/Resolved]
